FAERS Safety Report 13590000 (Version 3)
Quarter: 2017Q2

REPORT INFORMATION
  Report Type: Spontaneous
  Country: GB (occurrence: GB)
  Receive Date: 20170529
  Receipt Date: 20170620
  Transmission Date: 20170830
  Serious: Yes (Hospitalization, Other)
  Sender: FDA-Public Use
  Company Number: GB-DRREDDYS-GER/UKI/17/0090884

PATIENT
  Age: 55 Year
  Sex: Male

DRUGS (21)
  1. BOCOCIZUMAB [Suspect]
     Active Substance: BOCOCIZUMAB
     Indication: CARDIOVASCULAR DISORDER
     Dosage: FREQUENCY- EVERY 2 WEEKS
     Route: 058
     Dates: start: 20150908, end: 20161101
  2. FUROSEMIDE. [Suspect]
     Active Substance: FUROSEMIDE
     Indication: PULMONARY OEDEMA
  3. SERTRALINE [Concomitant]
     Active Substance: SERTRALINE HYDROCHLORIDE
     Indication: DEPRESSION
     Dates: start: 20110816
  4. CODEINE PHOSPHATE [Concomitant]
     Active Substance: CODEINE PHOSPHATE
     Indication: PRODUCT USED FOR UNKNOWN INDICATION
  5. PARACETAMOL [Concomitant]
     Active Substance: ACETAMINOPHEN
     Indication: PAIN IN EXTREMITY
     Dates: start: 20110616
  6. QUETIAPINE. [Suspect]
     Active Substance: QUETIAPINE
     Indication: DEPRESSION
     Route: 048
     Dates: start: 20150826
  7. RAMIPRIL. [Suspect]
     Active Substance: RAMIPRIL
     Indication: CARDIAC FAILURE
     Route: 048
     Dates: start: 20130813, end: 20160629
  8. ENTRESTO [Concomitant]
     Active Substance: SACUBITRIL\VALSARTAN
     Indication: LEFT VENTRICULAR DYSFUNCTION
     Dosage: ENTRESTO  49/51
     Dates: start: 20160701
  9. OMEPRAZOLE. [Suspect]
     Active Substance: OMEPRAZOLE
     Indication: DYSPEPSIA
     Route: 048
     Dates: start: 20140116
  10. FUROSEMIDE. [Suspect]
     Active Substance: FUROSEMIDE
     Indication: LEFT VENTRICULAR DYSFUNCTION
     Dates: start: 20160402
  11. ATORVASTATIN [Concomitant]
     Active Substance: ATORVASTATIN
     Indication: CARDIOVASCULAR DISORDER
     Dates: start: 20130708
  12. FOLIC ACID. [Concomitant]
     Active Substance: FOLIC ACID
     Indication: ANAEMIA
     Dates: start: 20131211
  13. LOTRIDERM [Concomitant]
     Active Substance: BETAMETHASONE DIPROPIONATE\CLOTRIMAZOLE
     Indication: PSORIASIS
     Dates: start: 20150626
  14. IVABRADINE [Suspect]
     Active Substance: IVABRADINE
     Indication: ANGINA PECTORIS
     Dates: start: 20150211
  15. GLYCERYL TRINITRATE [Concomitant]
     Active Substance: NITROGLYCERIN
     Indication: PAIN
     Dates: start: 20130902
  16. KAPAKE [Concomitant]
     Active Substance: ACETAMINOPHEN\CODEINE PHOSPHATE
     Indication: PAIN IN EXTREMITY
     Dates: start: 20110616
  17. METHOTREXATE. [Concomitant]
     Active Substance: METHOTREXATE
     Indication: PSORIASIS
     Dates: start: 20150727
  18. FUROSEMIDE. [Suspect]
     Active Substance: FUROSEMIDE
     Indication: LUNG DISORDER
  19. ASPIRIN. [Concomitant]
     Active Substance: ASPIRIN
     Indication: CARDIOVASCULAR DISORDER
     Dates: start: 20130708
  20. CARVEDILOL. [Suspect]
     Active Substance: CARVEDILOL
     Indication: ANGINA PECTORIS
     Dates: start: 20110616
  21. ISOSORBIDE MONONITRATE. [Suspect]
     Active Substance: ISOSORBIDE MONONITRATE
     Indication: ANGINA PECTORIS
     Dosage: ORAL FORMULATION: DURULE
     Route: 048
     Dates: start: 20160205

REACTIONS (11)
  - Pulmonary oedema [Unknown]
  - Fluid retention [Unknown]
  - Anaemia [Unknown]
  - Oedema peripheral [Not Recovered/Not Resolved]
  - Ventricular dysfunction [Unknown]
  - Angina pectoris [Unknown]
  - Psoriasis [Unknown]
  - Contusion [Recovered/Resolved]
  - Presyncope [Unknown]
  - Cardiac failure [Unknown]
  - Hypotension [Recovered/Resolved]

NARRATIVE: CASE EVENT DATE: 20130919
